FAERS Safety Report 5336686-7 (Version None)
Quarter: 2007Q2

REPORT INFORMATION
  Report Type: 
  Country: None (occurrence: None)
  Receive Date: 20070524
  Receipt Date: 20070514
  Transmission Date: 20071010
  Serious: Yes (Hospitalization, Other)
  Sender: FDA-Public Use
  Company Number: 2007BI006255

PATIENT
  Sex: Female

DRUGS (8)
  1. AVONEX [Suspect]
     Indication: MULTIPLE SCLEROSIS
     Dosage: 30 UG QW IM
     Route: 030
     Dates: start: 20010629, end: 20040810
  2. DILANTIN [Concomitant]
  3. LIPITOR [Concomitant]
  4. VALIUM [Concomitant]
  5. DIOVAN [Concomitant]
  6. DEPAKOTE [Concomitant]
  7. ASPIRIN [Concomitant]
  8. TYLENOL [Concomitant]

REACTIONS (14)
  - ANOREXIA [None]
  - BLADDER DISORDER [None]
  - BLOOD PRESSURE INCREASED [None]
  - CARDIAC ANEURYSM [None]
  - CEREBROVASCULAR ACCIDENT [None]
  - CONVULSION [None]
  - DEPRESSION [None]
  - INAPPROPRIATE ANTIDIURETIC HORMONE SECRETION [None]
  - INTENTIONAL SELF-INJURY [None]
  - LACUNAR INFARCTION [None]
  - MYOCARDIAL INFARCTION [None]
  - PSYCHOTIC DISORDER [None]
  - SOMNOLENCE [None]
  - THYROID DISORDER [None]
